FAERS Safety Report 13073950 (Version 1)
Quarter: 2016Q4

REPORT INFORMATION
  Report Type: Spontaneous
  Country: US (occurrence: US)
  Receive Date: 20161229
  Receipt Date: 20161229
  Transmission Date: 20170207
  Serious: No
  Sender: FDA-Public Use
  Company Number: US-IMPAX LABORATORIES, INC-2016-IPXL-00562

PATIENT
  Age: 53 Year
  Sex: Male

DRUGS (4)
  1. MYRBETRIQ [Concomitant]
     Active Substance: MIRABEGRON
     Dosage: 50 MG, TWO PILLS
     Route: 048
     Dates: start: 201601, end: 201601
  2. MYRBETRIQ [Concomitant]
     Active Substance: MIRABEGRON
     Dosage: 50 MG, SINGLE
     Route: 048
     Dates: start: 2016, end: 2016
  3. MYRBETRIQ [Concomitant]
     Active Substance: MIRABEGRON
     Indication: HYPERTONIC BLADDER
     Dosage: 50 MG, 2 /DAY
     Route: 048
     Dates: start: 201601, end: 201601
  4. OXYBUTYNIN CHLORIDE ER [Suspect]
     Active Substance: OXYBUTYNIN CHLORIDE
     Indication: HYPERTONIC BLADDER
     Dosage: 2, 3, 4 OR MORE OF THE TABLETS A DAY
     Route: 065
     Dates: start: 2016

REACTIONS (3)
  - Dry mouth [Unknown]
  - Drug ineffective [Unknown]
  - Nasal dryness [Unknown]

NARRATIVE: CASE EVENT DATE: 2016
